FAERS Safety Report 4759983-2 (Version None)
Quarter: 2005Q3

REPORT INFORMATION
  Report Type: 
  Country: None (occurrence: None)
  Receive Date: 20050831
  Receipt Date: 20050822
  Transmission Date: 20060218
  Serious: Yes (Disabling, Other)
  Sender: FDA-Public Use
  Company Number: 2005097670

PATIENT
  Sex: Female

DRUGS (6)
  1. NORVASC [Suspect]
     Indication: HYPERTENSION
     Dosage: 5 MG, ORAL
     Route: 048
     Dates: start: 20020101, end: 20050101
  2. AVARO (IRBESARTAN) [Concomitant]
  3. AVALIDE [Concomitant]
  4. IBUPROFEN [Concomitant]
  5. PREMARIN PATCH (ESTROTENS CONJUGATED) [Concomitant]
  6. VITAMINS (VITAMINS) [Concomitant]

REACTIONS (1)
  - MYASTHENIC SYNDROME [None]
